FAERS Safety Report 6440427-X (Version None)
Quarter: 2009Q4

REPORT INFORMATION
  Report Type: 
  Country: None (occurrence: None)
  Receive Date: 20091113
  Receipt Date: 20091103
  Transmission Date: 20100525
  Serious: Yes (Death, Hospitalization)
  Sender: FDA-Public Use
  Company Number: US-PFIZER INC-2009292022

PATIENT
  Sex: Male
  Weight: 137.5 kg

DRUGS (17)
  1. SUNITINIB MALATE [Suspect]
     Indication: COLORECTAL CANCER
     Dosage: 37.5 MG, 1X/DAY
     Route: 048
     Dates: start: 20090615, end: 20091101
  2. OXALIPLATIN [Suspect]
     Indication: COLORECTAL CANCER
     Dosage: 220 MG, EVERY TWO WEEKS
     Dates: start: 20091026, end: 20091026
  3. FLUOROURACIL [Suspect]
     Indication: COLORECTAL CANCER
     Dosage: 6216 MG,  EVERY TWO WEEKS
     Route: 040
     Dates: start: 20091026, end: 20091028
  4. FLUOROURACIL [Suspect]
     Dosage: 1036 MG, EVERY TWO WEEKS
     Route: 042
     Dates: start: 20091026, end: 20091026
  5. CALCIUM FOLINATE [Suspect]
     Indication: COLORECTAL CANCER
     Dosage: 1036 MG, EVERY TWO WEEKS
     Route: 042
     Dates: start: 20091026, end: 20091026
  6. APREPITANT [Concomitant]
     Indication: PROPHYLACTIC CHEMOTHERAPY
     Dosage: 80 MG, UNK
     Dates: start: 20091026, end: 20091026
  7. DOCUSATE [Concomitant]
     Indication: CONSTIPATION
     Dosage: 100 MG, AS NEEDED
     Dates: start: 20081019
  8. GABAPENTIN [Concomitant]
     Indication: RESTLESS LEGS SYNDROME
     Dosage: 300 MG, UNK
     Dates: start: 20061012
  9. HUMULIN 70/30 [Concomitant]
     Indication: DIABETES MELLITUS
     Dosage: UNK
     Dates: start: 20090414
  10. PROTONIX [Concomitant]
     Indication: GASTROOESOPHAGEAL REFLUX DISEASE
     Dosage: 40 MG, AS NEEDED
     Dates: start: 20090609
  11. SENOKOT [Concomitant]
     Indication: CONSTIPATION
     Dosage: UNK
     Dates: start: 20090728
  12. VIAGRA [Concomitant]
     Indication: ERECTILE DYSFUNCTION
     Dosage: UNK
     Dates: start: 20061012
  13. TESTOSTERONE [Concomitant]
     Indication: HYPOGONADISM
     Dosage: UNK
     Dates: start: 20061012
  14. TRAZODONE [Concomitant]
     Indication: SLEEP DISORDER
     Dosage: 50 MG, UNK
     Dates: start: 20061012
  15. LISINOPRIL [Concomitant]
     Indication: HYPERTENSION
     Dosage: 10 MG, UNK
     Dates: start: 20090414
  16. SILDENAFIL [Concomitant]
     Indication: HYPOGONADISM
     Dosage: UNK
     Dates: start: 20090627
  17. PALONOSETRON [Concomitant]
     Indication: PROPHYLACTIC CHEMOTHERAPY
     Dosage: UNK
     Dates: start: 20091026, end: 20091026

REACTIONS (5)
  - ASCITES [None]
  - DYSPNOEA [None]
  - METABOLIC ACIDOSIS [None]
  - RENAL FAILURE ACUTE [None]
  - SMALL INTESTINAL OBSTRUCTION [None]
